FAERS Safety Report 7422316-7 (Version None)
Quarter: 2011Q2

REPORT INFORMATION
  Report Type: 
  Country: None (occurrence: None)
  Receive Date: 20110419
  Receipt Date: 20110411
  Transmission Date: 20111010
  Serious: No
  Sender: FDA-Public Use
  Company Number: US-BIOGENIDEC-2010BI009098

PATIENT
  Sex: Male

DRUGS (1)
  1. TYSABRI [Suspect]
     Indication: MULTIPLE SCLEROSIS
     Route: 042
     Dates: start: 20080421

REACTIONS (6)
  - MOBILITY DECREASED [None]
  - BALANCE DISORDER [None]
  - ABASIA [None]
  - GAIT DISTURBANCE [None]
  - URTICARIA [None]
  - MULTIPLE SCLEROSIS [None]
